FAERS Safety Report 5482421-1 (Version None)
Quarter: 2007Q4

REPORT INFORMATION
  Report Type: 
  Country: None (occurrence: None)
  Receive Date: 20071011
  Receipt Date: 20071003
  Transmission Date: 20080405
  Serious: Yes (Death, Hospitalization)
  Sender: FDA-Public Use
  Company Number: B0490544A

PATIENT
  Age: 4 Year
  Sex: Male

DRUGS (2)
  1. ALBENDAZOLE [Suspect]
     Indication: FILARIASIS LYMPHATIC
     Dosage: 400MG SINGLE DOSE
     Route: 048
     Dates: start: 20070623, end: 20070623
  2. DIETHYLCARBAMAZINE CITRATE [Suspect]
     Indication: FILARIASIS LYMPHATIC
     Dosage: 100MG SINGLE DOSE
     Route: 048
     Dates: start: 20070623, end: 20070623

REACTIONS (4)
  - ABDOMINAL PAIN UPPER [None]
  - CONVULSION [None]
  - DEATH [None]
  - LOSS OF CONSCIOUSNESS [None]
